FAERS Safety Report 17628552 (Version 1)
Quarter: 2020Q2

REPORT INFORMATION
  Report Type: Spontaneous
  Country: FR (occurrence: FR)
  Receive Date: 20200406
  Receipt Date: 20200406
  Transmission Date: 20200713
  Serious: Yes (Other)
  Sender: FDA-Public Use
  Company Number: FR-ABBVIE-20K-056-3352412-00

PATIENT
  Age: 61 Year
  Sex: Male
  Weight: 101 kg

DRUGS (11)
  1. KALETRA [Suspect]
     Active Substance: LOPINAVIR\RITONAVIR
     Indication: CORONAVIRUS INFECTION
     Route: 048
     Dates: start: 20200320, end: 20200324
  2. BISOPROLOL [Concomitant]
     Active Substance: BISOPROLOL
     Indication: PRODUCT USED FOR UNKNOWN INDICATION
  3. IMOVANE [Concomitant]
     Active Substance: ZOPICLONE
     Indication: PRODUCT USED FOR UNKNOWN INDICATION
  4. LASILIX [Concomitant]
     Active Substance: FUROSEMIDE
     Indication: PRODUCT USED FOR UNKNOWN INDICATION
  5. ALDACTONE [Concomitant]
     Active Substance: SPIRONOLACTONE
     Indication: PRODUCT USED FOR UNKNOWN INDICATION
  6. ROVAMYCINE [Concomitant]
     Active Substance: SPIRAMYCIN
     Indication: PRODUCT USED FOR UNKNOWN INDICATION
  7. PANTOPRAZOLE [Concomitant]
     Active Substance: PANTOPRAZOLE
     Indication: PRODUCT USED FOR UNKNOWN INDICATION
  8. ACIDE CLAVULANIQUE [Concomitant]
     Active Substance: CLAVULANIC ACID
     Indication: PRODUCT USED FOR UNKNOWN INDICATION
  9. SMECTA [Concomitant]
     Active Substance: MONTMORILLONITE
     Indication: PRODUCT USED FOR UNKNOWN INDICATION
  10. AMOXICILLINE [Concomitant]
     Active Substance: AMOXICILLIN
     Indication: PRODUCT USED FOR UNKNOWN INDICATION
  11. ULTRA LEVURE [Concomitant]
     Active Substance: SACCHAROMYCES CEREVISIAE
     Indication: PRODUCT USED FOR UNKNOWN INDICATION

REACTIONS (2)
  - Hyperbilirubinaemia [Not Recovered/Not Resolved]
  - Hyperlipasaemia [Not Recovered/Not Resolved]

NARRATIVE: CASE EVENT DATE: 20200322
